FAERS Safety Report 25568245 (Version 2)
Quarter: 2025Q3

REPORT INFORMATION
  Report Type: Spontaneous
  Country: US (occurrence: US)
  Receive Date: 20250716
  Receipt Date: 20250728
  Transmission Date: 20251020
  Serious: Yes (Other)
  Sender: MYLAN
  Company Number: US-MYLANLABS-2025M1058817

PATIENT
  Age: 64 Year
  Sex: Female

DRUGS (3)
  1. XANAX [Suspect]
     Active Substance: ALPRAZOLAM
     Indication: Attention deficit hyperactivity disorder
  2. XANAX [Suspect]
     Active Substance: ALPRAZOLAM
  3. XANAX [Suspect]
     Active Substance: ALPRAZOLAM

REACTIONS (3)
  - Neuropathy peripheral [Unknown]
  - Product use issue [Unknown]
  - Product use in unapproved indication [Unknown]
